FAERS Safety Report 7090482-1 (Version None)
Quarter: 2010Q4

REPORT INFORMATION
  Report Type: 
  Country: None (occurrence: None)
  Receive Date: 20101109
  Receipt Date: 20101103
  Transmission Date: 20110411
  Serious: Yes (Other)
  Sender: FDA-Public Use
  Company Number: FR-PFIZER INC-2010124045

PATIENT
  Age: 68 Year
  Sex: Male
  Weight: 85 kg

DRUGS (4)
  1. VFEND [Suspect]
     Dosage: UNK
     Dates: start: 20100908, end: 20100913
  2. LYRICA [Suspect]
     Dosage: UNK
     Route: 048
     Dates: start: 20100906, end: 20100917
  3. CYMBALTA [Suspect]
     Dosage: UNK
     Route: 048
     Dates: start: 20100907, end: 20100911
  4. CONTRAMAL [Suspect]
     Dosage: UNK
     Route: 048
     Dates: start: 20100904, end: 20100917

REACTIONS (1)
  - BLOOD ALKALINE PHOSPHATASE INCREASED [None]
